FAERS Safety Report 6505317-2 (Version None)
Quarter: 2009Q4

REPORT INFORMATION
  Report Type: 
  Country: None (occurrence: None)
  Receive Date: 20091201
  Receipt Date: 20090819
  Transmission Date: 20100525
  Serious: No
  Sender: FDA-Public Use
  Company Number: 2009SP021067

PATIENT
  Sex: Female

DRUGS (1)
  1. NUVARING [Suspect]
     Indication: DRUG USE FOR UNKNOWN INDICATION

REACTIONS (2)
  - DEVICE EXPULSION [None]
  - INAPPROPRIATE SCHEDULE OF DRUG ADMINISTRATION [None]
